FAERS Safety Report 16279157 (Version 2)
Quarter: 2019Q2

REPORT INFORMATION
  Report Type: Spontaneous
  Country: PL (occurrence: PL)
  Receive Date: 20190506
  Receipt Date: 20190506
  Transmission Date: 20190711
  Serious: Yes (Death)
  Sender: FDA-Public Use
  Company Number: PHHY2019PL102629

PATIENT
  Sex: Male

DRUGS (12)
  1. METHOTREXATE. [Suspect]
     Active Substance: METHOTREXATE
     Indication: BONE MARROW TRANSPLANT
     Route: 065
  2. METHYLPREDNISOLONE. [Suspect]
     Active Substance: METHYLPREDNISOLONE
     Indication: ACUTE GRAFT VERSUS HOST DISEASE IN LIVER
  3. ETANERCEPT [Suspect]
     Active Substance: ETANERCEPT
     Indication: ACUTE GRAFT VERSUS HOST DISEASE IN INTESTINE
  4. ETOPOSIDE. [Concomitant]
     Active Substance: ETOPOSIDE
     Indication: BONE MARROW CONDITIONING REGIMEN
     Route: 065
  5. METHOTREXATE. [Suspect]
     Active Substance: METHOTREXATE
     Indication: PROPHYLAXIS AGAINST GRAFT VERSUS HOST DISEASE
  6. CICLOSPORIN [Suspect]
     Active Substance: CYCLOSPORINE
     Indication: BONE MARROW TRANSPLANT
     Route: 065
  7. CICLOSPORIN [Suspect]
     Active Substance: CYCLOSPORINE
     Indication: PROPHYLAXIS AGAINST GRAFT VERSUS HOST DISEASE
  8. METHYLPREDNISOLONE. [Suspect]
     Active Substance: METHYLPREDNISOLONE
     Indication: ACUTE GRAFT VERSUS HOST DISEASE IN INTESTINE
  9. ANTITHYMOCYTE IMMUNOGLOBULIN [Suspect]
     Active Substance: THYMOCYTE IMMUNE GLOBULIN NOS
     Indication: BONE MARROW TRANSPLANT
     Dosage: UNK
     Route: 065
  10. METHYLPREDNISOLONE. [Suspect]
     Active Substance: METHYLPREDNISOLONE
     Indication: ACUTE GRAFT VERSUS HOST DISEASE IN SKIN
     Route: 065
  11. ETANERCEPT [Suspect]
     Active Substance: ETANERCEPT
     Indication: ACUTE GRAFT VERSUS HOST DISEASE IN LIVER
  12. ETANERCEPT [Suspect]
     Active Substance: ETANERCEPT
     Indication: ACUTE GRAFT VERSUS HOST DISEASE IN SKIN
     Route: 065

REACTIONS (6)
  - Acute graft versus host disease in skin [Fatal]
  - Disease progression [Fatal]
  - Acute graft versus host disease in liver [Fatal]
  - Therapy non-responder [Unknown]
  - Product use in unapproved indication [Unknown]
  - Acute graft versus host disease in intestine [Fatal]
